FAERS Safety Report 15715367 (Version 1)
Quarter: 2018Q4

REPORT INFORMATION
  Report Type: Spontaneous
  Country: US (occurrence: US)
  Receive Date: 20181212
  Receipt Date: 20181212
  Transmission Date: 20190205
  Serious: No
  Sender: FDA-Public Use
  Company Number: None

PATIENT
  Age: 61 Year
  Sex: Female

DRUGS (7)
  1. HYDROXYZINE 25MG [Concomitant]
  2. GABAPENTIN 300MG [Concomitant]
     Active Substance: GABAPENTIN
  3. LANTUS U-100 VIAL [Concomitant]
  4. PREDNISONE 10MG [Concomitant]
     Active Substance: PREDNISONE
  5. COSENTYX [Suspect]
     Active Substance: SECUKINUMAB
     Indication: PSORIASIS
     Dosage: ?          OTHER FREQUENCY:MONTHLY;?
     Route: 058
     Dates: start: 20180618, end: 20181212
  6. ASPIRIN 81 MG [Concomitant]
     Active Substance: ASPIRIN
  7. HUMALOG 10UNITS/ML VIAL [Concomitant]

REACTIONS (1)
  - Injection site pruritus [None]

NARRATIVE: CASE EVENT DATE: 20181119
